FAERS Safety Report 10584748 (Version 1)
Quarter: 2014Q4

REPORT INFORMATION
  Report Type: Spontaneous
  Country: US (occurrence: None)
  Receive Date: 20141113
  Receipt Date: 20141113
  Transmission Date: 20150529
  Serious: Yes (Hospitalization)
  Sender: FDA-Public Use
  Company Number: None

PATIENT
  Age: 60 Year
  Sex: Male
  Weight: 67.3 kg

DRUGS (10)
  1. CIPROFLOXACIN. [Concomitant]
     Active Substance: CIPROFLOXACIN
  2. AMARYL [Concomitant]
     Active Substance: GLIMEPIRIDE
  3. LYRICA [Concomitant]
     Active Substance: PREGABALIN
  4. SOFOSBUVIR 400MG GILEAD [Suspect]
     Active Substance: SOFOSBUVIR
     Indication: HEPATITIS C
     Route: 048
     Dates: start: 20140710, end: 20141010
  5. RAPAMUNA [Concomitant]
  6. ATARAX [Concomitant]
     Active Substance: HYDROXYZINE\HYDROXYZINE HYDROCHLORIDE
  7. OS-CAL [Concomitant]
  8. NOVOLOG [Concomitant]
     Active Substance: INSULIN ASPART
  9. LOPRESSOR [Concomitant]
     Active Substance: METOPROLOL TARTRATE
  10. SIMEPREVIR 150MG JANSSEN [Suspect]
     Active Substance: SIMEPREVIR
     Indication: HEPATITIS C
     Route: 048
     Dates: start: 20140710, end: 20141010

REACTIONS (2)
  - Blood glucose increased [None]
  - Dehydration [None]

NARRATIVE: CASE EVENT DATE: 20140811
